FAERS Safety Report 21966316 (Version 1)
Quarter: 2023Q1

REPORT INFORMATION
  Report Type: Spontaneous
  Country: US (occurrence: US)
  Receive Date: 20230208
  Receipt Date: 20230208
  Transmission Date: 20230418
  Serious: No
  Sender: FDA-Public Use
  Company Number: US-BRISTOL-MYERS SQUIBB COMPANY-2023-018663

PATIENT
  Age: 54 Year
  Sex: Male

DRUGS (1)
  1. SPRYCEL [Suspect]
     Active Substance: DASATINIB
     Indication: Leukaemia
     Dosage: DOSE : UNAVAILABLE;     FREQ : ONE TIME A DAY
     Route: 048
     Dates: start: 20221015

REACTIONS (7)
  - Illness [Unknown]
  - Renal pain [Unknown]
  - Back pain [Unknown]
  - Abdominal pain [Unknown]
  - Abdominal pain upper [Unknown]
  - Headache [Unknown]
  - Blood pressure measurement [Unknown]

NARRATIVE: CASE EVENT DATE: 20230201
